FAERS Safety Report 4716141-5 (Version None)
Quarter: 2005Q3

REPORT INFORMATION
  Report Type: 
  Country: None (occurrence: None)
  Receive Date: 20050718
  Receipt Date: 20050506
  Transmission Date: 20060218
  Serious: Yes (Hospitalization)
  Sender: FDA-Public Use
  Company Number: DE-MERCK-0505DEU00055

PATIENT
  Age: 72 Year
  Sex: Male

DRUGS (6)
  1. PROSCAR [Suspect]
     Indication: PROSTATE CANCER
     Route: 048
     Dates: start: 20020725, end: 20050301
  2. GOSERELIN ACETATE [Suspect]
     Indication: PROSTATE CANCER
     Route: 058
     Dates: start: 20020718, end: 20050301
  3. BICALUTAMIDE [Suspect]
     Indication: PROSTATE CANCER
     Route: 048
     Dates: start: 20030403, end: 20050101
  4. BICALUTAMIDE [Suspect]
     Route: 048
     Dates: start: 20050101, end: 20050301
  5. BICALUTAMIDE [Suspect]
     Route: 048
     Dates: start: 20050301, end: 20050301
  6. FLUTAMIDE [Concomitant]
     Route: 048
     Dates: start: 20020717, end: 20030301

REACTIONS (6)
  - ACUTE FEBRILE NEUTROPHILIC DERMATOSIS [None]
  - ARTHRALGIA [None]
  - COUGH [None]
  - NAUSEA [None]
  - PROSTATIC SPECIFIC ANTIGEN INCREASED [None]
  - RASH MACULAR [None]
